FAERS Safety Report 8762920 (Version 3)
Quarter: 2013Q2

REPORT INFORMATION
  Report Type: Spontaneous
  Country: US (occurrence: None)
  Receive Date: 20120824
  Receipt Date: 20130524
  Transmission Date: 20140414
  Serious: Yes (Hospitalization)
  Sender: FDA-Public Use
  Company Number: AG-2012-0630

PATIENT
  Age: 70 Year
  Sex: Male
  Weight: 69.8 kg

DRUGS (9)
  1. CHLORAMBUCIL [Suspect]
     Indication: CHRONIC LYMPHOCYTIC LEUKAEMIA
     Route: 048
     Dates: start: 20120402, end: 20120506
  2. INVESTIGATIONAL DRUG [Suspect]
     Indication: CHRONIC LYMPHOCYTIC LEUKAEMIA
     Route: 048
     Dates: start: 20120402, end: 20120531
  3. SPIRIVA (TIOTROPIUM) (UNKNOWN) [Concomitant]
  4. DULERA (MOMETASONE FUROATE, FORMOTEROL) [Concomitant]
  5. TAMSULOSIN (TAMSULOSIN HYDROCHLORIDE) [Concomitant]
  6. PROTONIX (PANTOPRAZOLE) [Concomitant]
  7. FINASTERIDE (FINASTERIDE) [Concomitant]
  8. LOVASTATIN (LOVASTATIN) [Concomitant]
  9. VALTREX (VALACICLOVIR HYDROCHLORIDE) [Concomitant]

REACTIONS (7)
  - Dyspnoea [None]
  - Oxygen saturation decreased [None]
  - Neutropenia [None]
  - Hypoxia [None]
  - Interstitial lung disease [None]
  - Emphysema [None]
  - Pleural effusion [None]
